FAERS Safety Report 17798480 (Version 1)
Quarter: 2020Q2

REPORT INFORMATION
  Report Type: Spontaneous
  Country: IT (occurrence: IT)
  Receive Date: 20200518
  Receipt Date: 20200518
  Transmission Date: 20200714
  Serious: Yes (Hospitalization)
  Sender: FDA-Public Use
  Company Number: IT-TEVA-2020-IT-1235771

PATIENT
  Age: 82 Year
  Sex: Male

DRUGS (13)
  1. COLCHICINA LIRCA [Suspect]
     Active Substance: COLCHICINE
     Indication: CORONAVIRUS INFECTION
     Dosage: 1 DOSAGE FORMS
     Route: 048
     Dates: start: 20200401, end: 20200404
  2. OMEPRAZOLE. [Concomitant]
     Active Substance: OMEPRAZOLE
  3. SYMBICORT, 160 MICROGRAMMI/4,5 MICROGRAMMI/ INALAZIONE, POLVERE PER IN [Concomitant]
     Indication: CHRONIC OBSTRUCTIVE PULMONARY DISEASE
  4. DARUNAVIR [Suspect]
     Active Substance: DARUNAVIR
     Indication: CORONAVIRUS INFECTION
     Dosage: 1 DOSAGE FORMS
     Route: 048
     Dates: start: 20200317, end: 20200330
  5. PLAQUENIL [Suspect]
     Active Substance: HYDROXYCHLOROQUINE SULFATE
     Indication: CORONAVIRUS INFECTION
     Dosage: 2 DOSAGE FORMS
     Dates: start: 20200317, end: 20200405
  6. ENOXAPARIN SODIUM. [Concomitant]
     Active Substance: ENOXAPARIN SODIUM
     Indication: THROMBOSIS PROPHYLAXIS
     Dosage: 4000 KU
     Route: 058
     Dates: start: 20200318, end: 20200325
  7. LASIX [Concomitant]
     Active Substance: FUROSEMIDE
     Indication: HYPERTENSION
  8. PRADAXA 150MG HARD CAPSULES [Concomitant]
     Indication: CARDIAC FAILURE
  9. CLEXANE [Concomitant]
     Active Substance: ENOXAPARIN SODIUM
     Indication: THROMBOSIS PROPHYLAXIS
     Dates: start: 20200318, end: 20200325
  10. BISOPROLOL FUMARATE. [Concomitant]
     Active Substance: BISOPROLOL FUMARATE
     Indication: HYPERTENSION
  11. RITONAVIR SANDOZ [Suspect]
     Active Substance: RITONAVIR
     Indication: CORONAVIRUS INFECTION
     Dosage: 1 DOSAGE FORMS
     Route: 048
     Dates: start: 20200317, end: 20200330
  12. ZOPRANOL [Concomitant]
     Active Substance: ZOFENOPRIL
     Indication: HYPERTENSION
     Route: 048
  13. CORDARONE [Concomitant]
     Active Substance: AMIODARONE HYDROCHLORIDE
     Indication: ATRIAL FIBRILLATION

REACTIONS (2)
  - Erythema [Recovering/Resolving]
  - Acute generalised exanthematous pustulosis [Recovering/Resolving]

NARRATIVE: CASE EVENT DATE: 20200403
